FAERS Safety Report 8098518-6 (Version None)
Quarter: 2012Q1

REPORT INFORMATION
  Report Type: 
  Country: None (occurrence: None)
  Receive Date: 20120129
  Receipt Date: 20111031
  Transmission Date: 20120608
  Serious: No
  Sender: FDA-Public Use
  Company Number: US-ABBOTT-11P-163-0870204-00

PATIENT
  Sex: Female

DRUGS (1)
  1. HUMIRA [Suspect]
     Indication: CROHN'S DISEASE
     Route: 058
     Dates: start: 20111001

REACTIONS (6)
  - DYSPNOEA [None]
  - COUGH [None]
  - ABDOMINAL PAIN UPPER [None]
  - DIARRHOEA [None]
  - ASTHENIA [None]
  - CHILLS [None]
